FAERS Safety Report 4632999-2 (Version None)
Quarter: 2005Q2

REPORT INFORMATION
  Report Type: 
  Country: None (occurrence: None)
  Receive Date: 20050325
  Receipt Date: 20041119
  Transmission Date: 20051028
  Serious: No
  Sender: FDA-Public Use
  Company Number: USA031050093

PATIENT
  Age: 82 Year
  Sex: Female

DRUGS (3)
  1. FORTEO [Suspect]
     Indication: OSTEOPOROSIS
     Dates: start: 20030801
  2. PROTONIX [Concomitant]
  3. PRANDIN (PRANDIN) [Concomitant]

REACTIONS (3)
  - BACK PAIN [None]
  - INJECTION SITE HAEMORRHAGE [None]
  - INJECTION SITE PAIN [None]
